FAERS Safety Report 9431117 (Version 3)
Quarter: 2013Q4

REPORT INFORMATION
  Report Type: Spontaneous
  Country: IT (occurrence: IT)
  Receive Date: 20130730
  Receipt Date: 20131104
  Transmission Date: 20140711
  Serious: Yes (Hospitalization, Other)
  Sender: FDA-Public Use
  Company Number: IT-ELI_LILLY_AND_COMPANY-IT201307006253

PATIENT
  Age: 72 Year
  Sex: Female
  Weight: 36 kg

DRUGS (9)
  1. HUMALOG LISPRO [Suspect]
     Indication: TYPE 2 DIABETES MELLITUS
     Dosage: 77 IU, QD
     Route: 058
     Dates: start: 20130215
  2. HUMALOG LISPRO [Suspect]
     Indication: TYPE 2 DIABETES MELLITUS
     Dosage: 76 IU, QD
     Route: 058
     Dates: start: 20130606
  3. IRBESARTAN [Concomitant]
     Indication: HYPERTENSION
     Dosage: 312.5 MG, UNKNOWN
     Route: 048
     Dates: start: 20101027
  4. BISOPROLOL [Concomitant]
     Indication: HYPERTENSION
     Dosage: 10 MG, UNKNOWN
     Route: 048
     Dates: start: 20101027
  5. AMLODIPINE [Concomitant]
     Indication: HYPERTENSION
     Dosage: 10 MG, UNKNOWN
     Route: 048
     Dates: start: 20101027
  6. LEVOTHYROXINE [Concomitant]
     Indication: HYPOTHYROIDISM
     Dosage: 125 UG, UNKNOWN
     Route: 048
     Dates: start: 19940101
  7. WARFARIN [Concomitant]
     Indication: ATRIAL FIBRILLATION
     Dosage: 5 MG, UNKNOWN
     Route: 048
     Dates: start: 20040101
  8. SIMVASTIN [Concomitant]
     Dosage: 50 MG, UNKNOWN
     Route: 048
     Dates: start: 20101027
  9. SEACOR [Concomitant]
     Dosage: 3000 MG, UNKNOWN
     Route: 048
     Dates: start: 20101027

REACTIONS (6)
  - Carotid artery stenosis [Recovered/Resolved]
  - Cholelithiasis [Recovered/Resolved]
  - Renal failure chronic [Recovered/Resolved]
  - Peripheral arterial occlusive disease [Recovered/Resolved]
  - Asthenia [Not Recovered/Not Resolved]
  - Dyspnoea exertional [Unknown]
